FAERS Safety Report 14416983 (Version 2)
Quarter: 2018Q1

REPORT INFORMATION
  Report Type: Spontaneous
  Country: US (occurrence: US)
  Receive Date: 20180122
  Receipt Date: 20180201
  Transmission Date: 20180509
  Serious: No
  Sender: FDA-Public Use
  Company Number: US-PFIZER INC-2018024380

PATIENT
  Age: 36 Year
  Sex: Female
  Weight: 72.57 kg

DRUGS (4)
  1. ACZONE [Concomitant]
     Active Substance: DAPSONE
     Dosage: UNK, ALTERNATE DAYS WITH SOOLANTRA
     Dates: start: 201707
  2. SOOLANTRA [Concomitant]
     Active Substance: IVERMECTIN
     Dosage: UNK, ALTERNATE DAYS WITH ACZONE
     Dates: start: 201801
  3. RHOFADE [Concomitant]
     Active Substance: OXYMETAZOLINE HYDROCHLORIDE
     Dosage: UNK
     Dates: start: 201801
  4. XELJANZ XR [Suspect]
     Active Substance: TOFACITINIB CITRATE
     Dosage: 11 MG, 1X/DAY (AT NIGHT)
     Route: 048
     Dates: start: 2017

REACTIONS (1)
  - C-reactive protein increased [Unknown]
